FAERS Safety Report 12811289 (Version 1)
Quarter: 2016Q4

REPORT INFORMATION
  Report Type: Spontaneous
  Country: US (occurrence: US)
  Receive Date: 20161005
  Receipt Date: 20161005
  Transmission Date: 20170207
  Serious: No
  Sender: FDA-Public Use
  Company Number: US-BEH-2015052221

PATIENT
  Age: 56 Year
  Sex: Female
  Weight: 62 kg

DRUGS (26)
  1. KALBITOR [Suspect]
     Active Substance: ECALLANTIDE
     Indication: HEREDITARY ANGIOEDEMA
     Dosage: PRN
     Route: 058
  2. NORMAL SALINE [Concomitant]
     Active Substance: SODIUM CHLORIDE
  3. PHILLIPS MILK OF MAGNESIA [Concomitant]
  4. RANITIDINE HCL [Concomitant]
     Active Substance: RANITIDINE HYDROCHLORIDE
  5. STERILE WATER FOR INJECTION [Concomitant]
     Active Substance: WATER
  6. PERCOCET [Concomitant]
     Active Substance: ACETAMINOPHEN\OXYCODONE HYDROCHLORIDE
  7. IMURAN [Concomitant]
     Active Substance: AZATHIOPRINE
  8. OXYCODONE [Concomitant]
     Active Substance: OXYCODONE
  9. KALBITOR [Suspect]
     Active Substance: ECALLANTIDE
     Indication: IMMUNODEFICIENCY COMMON VARIABLE
     Dosage: PRN
     Route: 058
  10. PANTOPRAZOLE [Concomitant]
     Active Substance: PANTOPRAZOLE SODIUM
  11. SYNTHROID [Concomitant]
     Active Substance: LEVOTHYROXINE SODIUM
  12. STOOL SOFTENER (DOCUSATE SODIUM) [Concomitant]
     Active Substance: DOCUSATE SODIUM
  13. SODIUM CHLORIDE. [Concomitant]
     Active Substance: SODIUM CHLORIDE
  14. MIRALAX [Concomitant]
     Active Substance: POLYETHYLENE GLYCOL 3350
  15. D2000 ULTRA STRENGTH [Concomitant]
  16. EPIPEN AUTOINJECTOR [Concomitant]
  17. VITAMIN C [Concomitant]
     Active Substance: ASCORBIC ACID
  18. CREON [Concomitant]
     Active Substance: PANCRELIPASE AMYLASE\PANCRELIPASE LIPASE\PANCRELIPASE PROTEASE
  19. TRAZODONE [Concomitant]
     Active Substance: TRAZODONE HYDROCHLORIDE
  20. VALIUM [Concomitant]
     Active Substance: DIAZEPAM
  21. LYRICA [Concomitant]
     Active Substance: PREGABALIN
  22. MULTIVITAMINS [Concomitant]
     Active Substance: VITAMINS
  23. CARIMUNE [Suspect]
     Active Substance: HUMAN IMMUNOGLOBULIN G
     Indication: PRODUCT USED FOR UNKNOWN INDICATION
  24. DESIPRAMINE HCL [Concomitant]
     Active Substance: DESIPRAMINE HYDROCHLORIDE
  25. LIDOCAINE. [Concomitant]
     Active Substance: LIDOCAINE
  26. DICYCLOMINE [Concomitant]
     Active Substance: DICYCLOMINE HYDROCHLORIDE

REACTIONS (3)
  - Infusion site urticaria [Unknown]
  - Headache [Unknown]
  - Nausea [Unknown]

NARRATIVE: CASE EVENT DATE: 20150603
